FAERS Safety Report 7049769-0 (Version None)
Quarter: 2010Q4

REPORT INFORMATION
  Report Type: 
  Country: None (occurrence: None)
  Receive Date: 20101018
  Receipt Date: 20100127
  Transmission Date: 20110411
  Serious: No
  Sender: FDA-Public Use
  Company Number: US-BAYER-200943761NA

PATIENT
  Age: 34 Year
  Sex: Female

DRUGS (2)
  1. MIRENA [Suspect]
     Indication: CONTRACEPTION
     Dosage: FREQUENCY CONTINUOUS
     Route: 015
     Dates: start: 20091201
  2. ZOVIRAX [Concomitant]
     Indication: GENITAL HERPES
     Route: 061

REACTIONS (5)
  - BACK PAIN [None]
  - HERPES VIRUS INFECTION [None]
  - MUSCLE SPASMS [None]
  - PROCEDURAL PAIN [None]
  - VAGINAL HAEMORRHAGE [None]
